FAERS Safety Report 16222219 (Version 2)
Quarter: 2020Q3

REPORT INFORMATION
  Report Type: Report from Study
  Country: CN (occurrence: CN)
  Receive Date: 20190422
  Receipt Date: 20200828
  Transmission Date: 20201102
  Serious: Yes (Hospitalization)
  Sender: FDA-Public Use
  Company Number: CN-AMGEN-CHNCT2019060944

PATIENT
  Age: 66 Year
  Sex: Male

DRUGS (24)
  1. NIFEDIPINE. [Concomitant]
     Active Substance: NIFEDIPINE
     Indication: HYPERTENSION
     Dosage: 30 MILLIGRAM, BID
     Route: 048
     Dates: start: 20141222
  2. MOSAPRIDE CITRATE [Concomitant]
     Active Substance: MOSAPRIDE CITRATE
     Dosage: 5 MILLIGRAM, TID
     Route: 048
     Dates: start: 20180924, end: 201810
  3. OMEPRAZOLE. [Concomitant]
     Active Substance: OMEPRAZOLE
     Indication: CHRONIC GASTRITIS
     Dosage: 20 MILLIGRAM, QD
     Route: 048
     Dates: start: 20181126
  4. FURSULTIAMINE [Concomitant]
     Active Substance: FURSULTIAMINE
     Indication: EAR PAIN
     Dosage: 50 MILLIGRAM, TID
     Route: 048
     Dates: start: 20190315, end: 201903
  5. NORFLOXACIN [Concomitant]
     Active Substance: NORFLOXACIN
     Indication: DIARRHOEA
     Dosage: 400 MILLIGRAM, ONE TIME
     Route: 048
     Dates: start: 20190222
  6. IRON SUCROSE [Concomitant]
     Active Substance: IRON SUCROSE
     Indication: NEPHROGENIC ANAEMIA
     Dosage: 100 MILLIGRAM, ONE TIME
     Route: 042
     Dates: start: 20181121
  7. HERBAL EXTRACT NOS [Concomitant]
     Active Substance: HERBALS
     Indication: FOREARM FRACTURE
     Dosage: 25 MILLIGRAM, QD
     Route: 042
     Dates: start: 20190409, end: 20190411
  8. ESOMEPRAZOLE SODIUM. [Concomitant]
     Active Substance: ESOMEPRAZOLE SODIUM
     Indication: GASTRITIS
     Dosage: 40 MILLIGRAM, QD
     Route: 042
     Dates: start: 20180409, end: 20190411
  9. IMRECOXIB. [Concomitant]
     Active Substance: IMRECOXIB
     Indication: FOREARM FRACTURE
     Dosage: 0.1 GRAM, BID
     Route: 048
     Dates: start: 20190409, end: 20190411
  10. SODIUM PHOSPHATES [SODIUM PHOSPHATE] [Concomitant]
     Indication: ABDOMINAL DISCOMFORT
     Dosage: 90 MILLILITER, QOD
     Route: 048
     Dates: start: 20181122, end: 201812
  11. INSULIN GLARGINE [Concomitant]
     Active Substance: INSULIN GLARGINE
     Indication: TYPE 2 DIABETES MELLITUS
     Dosage: 4 INTERNATIONAL UNIT, QN
     Route: 058
     Dates: start: 20150126
  12. INSULIN ASPART [Concomitant]
     Active Substance: INSULIN ASPART
     Indication: TYPE 2 DIABETES MELLITUS
     Dosage: UNK UNK, TID, DURING A MEAL
     Route: 058
     Dates: start: 20150126
  13. RECOMBINANT HUMAN ERYTHROPOIETIN INJECTION (CHO CELL) [Concomitant]
     Indication: NEPHROGENIC ANAEMIA
     Dosage: 3000 UNIT, QWK
     Route: 042
     Dates: start: 20180202
  14. NIMODIPINE. [Concomitant]
     Active Substance: NIMODIPINE
     Indication: DIZZINESS
     Dosage: 30 MILLIGRAM, TID
     Route: 048
     Dates: start: 20171021, end: 20181128
  15. CINACALCET HCL [Suspect]
     Active Substance: CINACALCET HYDROCHLORIDE
     Indication: HYPERPARATHYROIDISM SECONDARY
     Dosage: 25 MILLIGRAM
     Route: 048
     Dates: start: 20180824, end: 20181122
  16. CALCIUM CARBONATE WITH D3 [Concomitant]
     Active Substance: CALCIUM CARBONATE\CHOLECALCIFEROL
     Indication: HYPERPHOSPHATAEMIA
     Dosage: 0.6 GRAM, BID (QD/BID)
     Route: 048
     Dates: start: 20170410
  17. LORATADINE. [Concomitant]
     Active Substance: LORATADINE
     Indication: PRURITUS
     Dosage: 10 MILLIGRAM, QD
     Route: 048
     Dates: start: 20171103, end: 20181128
  18. OLMESARTAN MEDOXOMIL. [Concomitant]
     Active Substance: OLMESARTAN MEDOXOMIL
     Indication: HYPERTENSION
     Dosage: 20 MILLIGRAM, BID (QD/BID)
     Route: 048
     Dates: start: 20180321
  19. MECOBALAMIN [Concomitant]
     Active Substance: METHYLCOBALAMIN
     Indication: EAR PAIN
     Dosage: 1 DOSAGE FORM, QD
     Route: 048
     Dates: start: 20190315, end: 201903
  20. CINACALCET HCL [Suspect]
     Active Substance: CINACALCET HYDROCHLORIDE
     Dosage: 25 MILLIGRAM, QOD
     Route: 048
     Dates: start: 20181123, end: 20190407
  21. CARVEDILOL. [Concomitant]
     Active Substance: CARVEDILOL
     Indication: HYPERTENSION
     Dosage: 12.5 MILLIGRAM, BID
     Route: 048
     Dates: start: 20180307
  22. LEVOCARNITINE. [Concomitant]
     Active Substance: LEVOCARNITINE
     Indication: METABOLIC CARDIOMYOPATHY
     Dosage: 1 GRAM, 3 TIMES/WK
     Route: 042
     Dates: start: 20141204
  23. MOSAPRIDE CITRATE [Concomitant]
     Active Substance: MOSAPRIDE CITRATE
     Indication: ABDOMINAL DISCOMFORT
     Dosage: 5 MILLIGRAM, TID
     Route: 048
     Dates: start: 20180924, end: 201809
  24. MOSAPRIDE CITRATE [Concomitant]
     Active Substance: MOSAPRIDE CITRATE
     Dosage: 5 MILLIGRAM, TID
     Route: 048
     Dates: start: 20181119

REACTIONS (1)
  - Forearm fracture [Recovered/Resolved]

NARRATIVE: CASE EVENT DATE: 20190409
